FAERS Safety Report 4268100-7 (Version None)
Quarter: 2004Q1

REPORT INFORMATION
  Report Type: 
  Country: None (occurrence: None)
  Receive Date: 20040109
  Receipt Date: 20040109
  Transmission Date: 20041129
  Serious: Yes (Hospitalization)
  Sender: FDA-Public Use
  Company Number: None

PATIENT
  Age: 51 Year
  Sex: Male
  Weight: 104.4 kg

DRUGS (4)
  1. DOXORUBICIN HCL [Suspect]
     Indication: ACUTE LYMPHOCYTIC LEUKAEMIA
     Dosage: INTRAVENOUS
     Route: 042
     Dates: start: 20020701, end: 20020701
  2. DOXORUBICIN HCL [Suspect]
     Indication: NEOPLASM RECURRENCE
     Dosage: INTRAVENOUS
     Route: 042
     Dates: start: 20020701, end: 20020701
  3. CYCLOPHOSPHAMIDE [Suspect]
     Indication: ACUTE LYMPHOCYTIC LEUKAEMIA
     Dosage: INTRAVENOUS
     Route: 042
     Dates: start: 20030808, end: 20030815
  4. CYCLOPHOSPHAMIDE [Suspect]
     Indication: NEOPLASM RECURRENCE
     Dosage: INTRAVENOUS
     Route: 042
     Dates: start: 20030808, end: 20030815

REACTIONS (5)
  - ATRIAL FIBRILLATION [None]
  - BLOOD CULTURE POSITIVE [None]
  - BLOOD PRESSURE DECREASED [None]
  - CHEST PAIN [None]
  - PANCYTOPENIA [None]
